FAERS Safety Report 14391356 (Version 2)
Quarter: 2018Q1

REPORT INFORMATION
  Report Type: Spontaneous
  Country: BR (occurrence: BR)
  Receive Date: 20180116
  Receipt Date: 20180121
  Transmission Date: 20180509
  Serious: Yes (Other)
  Sender: FDA-Public Use
  Company Number: BR-CONCORDIA PHARMACEUTICALS INC.-GSH201801-000130

PATIENT
  Age: 10 Year
  Sex: Female
  Weight: 31 kg

DRUGS (2)
  1. PREDNISONE. [Suspect]
     Active Substance: PREDNISONE
     Indication: SYSTEMIC LUPUS ERYTHEMATOSUS
     Route: 065
  2. HYDROXYCHLOROQUINE [Suspect]
     Active Substance: HYDROXYCHLOROQUINE
     Indication: SYSTEMIC LUPUS ERYTHEMATOSUS
     Route: 065

REACTIONS (11)
  - Drug ineffective [Recovered/Resolved]
  - Double stranded DNA antibody positive [Recovered/Resolved]
  - Oral mucosal blistering [Recovered/Resolved]
  - Dermatitis bullous [Recovered/Resolved]
  - Proteinuria [Recovered/Resolved]
  - Antiphospholipid antibodies positive [Recovered/Resolved]
  - Biopsy skin abnormal [Recovered/Resolved]
  - Antinuclear antibody positive [Recovered/Resolved]
  - Pyrexia [Recovered/Resolved]
  - Systemic lupus erythematosus rash [Recovered/Resolved]
  - Nasal mucosal disorder [Recovered/Resolved]
